FAERS Safety Report 4951505-6 (Version None)
Quarter: 2006Q1

REPORT INFORMATION
  Report Type: 
  Country: None (occurrence: None)
  Receive Date: 20060323
  Receipt Date: 20060313
  Transmission Date: 20060701
  Serious: Yes (Hospitalization, Other)
  Sender: FDA-Public Use
  Company Number: DE-BRACCO-BRO-009882

PATIENT
  Sex: Female

DRUGS (2)
  1. SOLUTRAST [Suspect]
     Route: 042
     Dates: start: 20051212, end: 20051212
  2. VITAMINS NOS [Concomitant]
     Route: 048

REACTIONS (3)
  - NEPHRITIS INTERSTITIAL [None]
  - RASH [None]
  - RENAL FAILURE [None]
